FAERS Safety Report 5244054-1 (Version None)
Quarter: 2007Q1

REPORT INFORMATION
  Report Type: 
  Country: None (occurrence: None)
  Receive Date: 20070222
  Receipt Date: 20070207
  Transmission Date: 20070707
  Serious: Yes (Hospitalization)
  Sender: FDA-Public Use
  Company Number: PHHO2007AR02883

PATIENT
  Sex: Female

DRUGS (1)
  1. ZELMAC / HTF 919A [Suspect]

REACTIONS (3)
  - BILIARY TRACT OPERATION [None]
  - CHOLELITHIASIS [None]
  - CHOLELITHOTOMY [None]
